FAERS Safety Report 4970992-0 (Version None)
Quarter: 2006Q2

REPORT INFORMATION
  Report Type: 
  Country: None (occurrence: None)
  Receive Date: 20060412
  Receipt Date: 20051028
  Transmission Date: 20061013
  Serious: Yes (Other)
  Sender: FDA-Public Use
  Company Number: 2005SE06199

PATIENT
  Age: 31042 Day
  Sex: Female

DRUGS (18)
  1. BLOPRESS TABLETS 4 [Suspect]
     Indication: HYPERTENSION
     Route: 048
     Dates: start: 20051006, end: 20051021
  2. BLOPRESS TABLETS 4 [Suspect]
     Indication: MIGRAINE
     Route: 048
     Dates: start: 20051006, end: 20051021
  3. CALSLOT TABLETS 10 [Suspect]
     Indication: HYPERTENSION
     Route: 048
     Dates: start: 20050825, end: 20051021
  4. CALSLOT TABLETS 10 [Suspect]
     Indication: MIGRAINE
     Route: 048
     Dates: start: 20050825, end: 20051021
  5. DASEN [Concomitant]
     Route: 048
     Dates: start: 20051014, end: 20051018
  6. DIHYDROERGOTAMINE MESYLATE [Concomitant]
     Indication: MIGRAINE
     Route: 048
     Dates: start: 20050401
  7. HIBON [Concomitant]
     Indication: MIGRAINE
     Route: 048
  8. TERRANAS [Concomitant]
     Indication: MIGRAINE
     Route: 048
     Dates: start: 20050401
  9. MIGRISTENE [Concomitant]
     Indication: MIGRAINE
     Route: 048
     Dates: start: 20050401
  10. TRYPTANOL [Concomitant]
     Indication: MIGRAINE
     Route: 048
  11. ASPIRIN [Concomitant]
     Indication: CAROTID ARTERY STENOSIS
     Route: 048
  12. NAPROXEN [Concomitant]
     Indication: MIGRAINE
     Route: 048
     Dates: start: 20050401
  13. PENTCILLIN [Concomitant]
     Route: 041
     Dates: start: 20051014, end: 20051014
  14. SEISHOKU [Concomitant]
     Route: 041
     Dates: start: 20051014, end: 20051014
  15. PL [Concomitant]
     Route: 048
     Dates: start: 20051014, end: 20051018
  16. BISOLVON [Concomitant]
     Route: 048
     Dates: start: 20051014, end: 20051018
  17. MEDICON [Concomitant]
     Route: 048
     Dates: start: 20051014, end: 20051018
  18. CRAVIT [Concomitant]
     Route: 048
     Dates: start: 20051014, end: 20051018

REACTIONS (5)
  - BRONCHITIS [None]
  - FALL [None]
  - MALAISE [None]
  - PHARYNGITIS [None]
  - SHOCK [None]
